FAERS Safety Report 8858626 (Version 1)
Quarter: 2012Q4

REPORT INFORMATION
  Report Type: 
  Country: BR (occurrence: BR)
  Receive Date: 20121024
  Receipt Date: 20121024
  Transmission Date: 20130627
  Serious: Yes (Other)
  Sender: FDA-Public Use
  Company Number: BR-SANOFI-AVENTIS-2012SA076967

PATIENT
  Age: 75 Year
  Sex: Female
  Weight: 60 kg

DRUGS (1)
  1. LANTUS [Suspect]
     Indication: TYPE II DIABETES MELLITUS
     Route: 065
     Dates: start: 2007

REACTIONS (4)
  - Cerebral atrophy [Not Recovered/Not Resolved]
  - Dementia [Not Recovered/Not Resolved]
  - Venous occlusion [Not Recovered/Not Resolved]
  - Osteoporosis [Not Recovered/Not Resolved]
